FAERS Safety Report 9224061 (Version 3)
Quarter: 2013Q3

REPORT INFORMATION
  Report Type: Spontaneous
  Country: US (occurrence: US)
  Receive Date: 20130411
  Receipt Date: 20130911
  Transmission Date: 20140515
  Serious: No
  Sender: FDA-Public Use
  Company Number: US-BIOGENIDEC-2013BI032902

PATIENT
  Age: 37 Year
  Sex: Female

DRUGS (4)
  1. TYSABRI [Suspect]
     Indication: MULTIPLE SCLEROSIS
     Route: 042
     Dates: start: 20130326
  2. AVONEX [Concomitant]
     Indication: MULTIPLE SCLEROSIS
     Route: 030
  3. TYLENOL [Concomitant]
     Indication: PREMEDICATION
     Dates: start: 2013
  4. BENADRYL [Concomitant]
     Indication: PREMEDICATION
     Dates: start: 2013

REACTIONS (19)
  - Dysstasia [Not Recovered/Not Resolved]
  - Pain [Not Recovered/Not Resolved]
  - Pain in extremity [Not Recovered/Not Resolved]
  - Fall [Recovered/Resolved]
  - Depression [Recovered/Resolved]
  - Balance disorder [Recovered/Resolved]
  - Sleep disorder [Recovered/Resolved]
  - Affective disorder [Recovered/Resolved]
  - Contusion [Recovered/Resolved]
  - Stress [Recovered/Resolved]
  - Post-traumatic stress disorder [Unknown]
  - Muscle disorder [Unknown]
  - Musculoskeletal stiffness [Unknown]
  - Drug ineffective [Unknown]
  - Asthenia [Recovered/Resolved]
  - Headache [Recovered/Resolved]
  - Fatigue [Recovered/Resolved]
  - Dyspnoea [Recovered/Resolved]
  - Arthralgia [Unknown]
